FAERS Safety Report 21375628 (Version 1)
Quarter: 2022Q3

REPORT INFORMATION
  Report Type: Spontaneous
  Country: AU (occurrence: AU)
  Receive Date: 20220926
  Receipt Date: 20220926
  Transmission Date: 20221026
  Serious: Yes (Death, Hospitalization)
  Sender: FDA-Public Use
  Company Number: AU-ELI_LILLY_AND_COMPANY-AU202209009401

PATIENT
  Age: 66 Year
  Sex: Female

DRUGS (3)
  1. DULAGLUTIDE [Suspect]
     Active Substance: DULAGLUTIDE
     Indication: Diabetes mellitus
     Dosage: UNK UNK, UNKNOWN
     Route: 065
  2. SEMAGLUTIDE [Suspect]
     Active Substance: SEMAGLUTIDE
     Indication: Diabetes mellitus
     Dosage: 0.25 MG, WEEKLY (1/W)
     Route: 065
  3. SEMAGLUTIDE [Suspect]
     Active Substance: SEMAGLUTIDE
     Dosage: 0.5 MG, WEEKLY (1/W)
     Route: 065
     Dates: start: 20210602

REACTIONS (8)
  - Multiple organ dysfunction syndrome [Fatal]
  - Systemic inflammatory response syndrome [Fatal]
  - Large intestine perforation [Fatal]
  - Intestinal ischaemia [Fatal]
  - Blood lactic acid increased [Fatal]
  - Hypotension [Fatal]
  - Acute kidney injury [Fatal]
  - Pancreatitis [Fatal]

NARRATIVE: CASE EVENT DATE: 20210620
